FAERS Safety Report 12590829 (Version 3)
Quarter: 2016Q4

REPORT INFORMATION
  Report Type: Spontaneous
  Country: US (occurrence: US)
  Receive Date: 20160726
  Receipt Date: 20161230
  Transmission Date: 20170207
  Serious: Yes (Hospitalization, Other)
  Sender: FDA-Public Use
  Company Number: US-WEST-WARD PHARMACEUTICALS CORP.-US-H14001-16-01325

PATIENT
  Sex: Female
  Weight: 39.95 kg

DRUGS (4)
  1. LEVOTHYROXINE. [Concomitant]
     Active Substance: LEVOTHYROXINE
     Route: 065
  2. POTASSIUM [Concomitant]
     Active Substance: POTASSIUM
     Indication: PRODUCT USED FOR UNKNOWN INDICATION
     Route: 042
  3. PREDNISONE. [Suspect]
     Active Substance: PREDNISONE
     Indication: BRONCHITIS
     Route: 048
     Dates: start: 2014, end: 201511
  4. LEVOTHYROXINE. [Concomitant]
     Active Substance: LEVOTHYROXINE
     Indication: PRODUCT USED FOR UNKNOWN INDICATION
     Route: 065

REACTIONS (12)
  - Liver disorder [Unknown]
  - Weight decreased [Recovering/Resolving]
  - Soliloquy [Recovered/Resolved]
  - Headache [Unknown]
  - Decreased appetite [Unknown]
  - Thyroid disorder [Unknown]
  - Type 1 diabetes mellitus [Not Recovered/Not Resolved]
  - Confusional state [Recovered/Resolved]
  - Skin wrinkling [Unknown]
  - Genital rash [Recovered/Resolved]
  - Blood potassium decreased [Unknown]
  - Diabetic coma [Recovered/Resolved]

NARRATIVE: CASE EVENT DATE: 2015
